FAERS Safety Report 15440304 (Version 2)
Quarter: 2018Q4

REPORT INFORMATION
  Report Type: Spontaneous
  Country: ES (occurrence: ES)
  Receive Date: 20180928
  Receipt Date: 20181203
  Transmission Date: 20190204
  Serious: Yes (Other)
  Sender: FDA-Public Use
  Company Number: ES-BIOCOMPATIBLES UK LTD-2018BTG01789

PATIENT
  Age: 30 Year
  Sex: Female

DRUGS (8)
  1. METHOTREXATE. [Suspect]
     Active Substance: METHOTREXATE
     Indication: OSTEOSARCOMA
     Dosage: 20.8 G, OVER 4 H (12 G/M2)
     Dates: start: 2018
  2. VORAXAZE [Suspect]
     Active Substance: GLUCARPIDASE
     Indication: TOXICITY TO VARIOUS AGENTS
     Dosage: 3000 UNITS (50 UNITS/KG), SINGLE, AS A BOLUS INJECTION OVER 5 MIN
     Route: 042
     Dates: start: 2018
  3. SODIUM [Concomitant]
     Active Substance: SODIUM
     Dosage: UNK
     Route: 048
  4. SODIUM [Concomitant]
     Active Substance: SODIUM
     Indication: FLUID OVERLOAD
     Dosage: UNK
     Route: 042
     Dates: start: 2018
  5. DOXORUBICIN [Concomitant]
     Active Substance: DOXORUBICIN
     Indication: OSTEOSARCOMA
     Dosage: 75 MG/M2, UNK
     Dates: start: 2018
  6. CISPLATIN NC [Concomitant]
     Active Substance: CISPLATIN
     Indication: OSTEOSARCOMA
     Dosage: 120 MG/M2, UNK
     Dates: start: 2018
  7. SODIUM BICARBONATE. [Concomitant]
     Active Substance: SODIUM BICARBONATE
     Indication: FLUID OVERLOAD
     Dosage: UNK
     Route: 042
     Dates: start: 2018
  8. SODIUM BICARBONATE. [Concomitant]
     Active Substance: SODIUM BICARBONATE
     Dosage: UNK
     Route: 048

REACTIONS (3)
  - Rebound effect [Recovered/Resolved]
  - Crystalluria [Recovered/Resolved]
  - Drug ineffective [Unknown]

NARRATIVE: CASE EVENT DATE: 2018
